FAERS Safety Report 14971545 (Version 4)
Quarter: 2018Q3

REPORT INFORMATION
  Report Type: Spontaneous
  Country: US (occurrence: US)
  Receive Date: 20180604
  Receipt Date: 20180903
  Transmission Date: 20181010
  Serious: Yes (Other)
  Sender: FDA-Public Use
  Company Number: US-GLAXOSMITHKLINE-US2018GSK098010

PATIENT
  Sex: Male

DRUGS (6)
  1. RADIATION THERAPY [Concomitant]
     Active Substance: RADIATION THERAPY
  2. NEBULIZED ALBUTEROL [Concomitant]
     Active Substance: ALBUTEROL
  3. ADVAIR DISKUS [Suspect]
     Active Substance: FLUTICASONE PROPIONATE\SALMETEROL XINAFOATE
     Indication: LUNG NEOPLASM MALIGNANT
  4. INCRUSE ELLIPTA [Suspect]
     Active Substance: UMECLIDINIUM BROMIDE
     Indication: ASTHMA
     Dosage: UNK
     Dates: start: 201804
  5. ADVAIR DISKUS [Suspect]
     Active Substance: FLUTICASONE PROPIONATE\SALMETEROL XINAFOATE
     Indication: ASTHMA
     Dosage: 1 PUFF(S), BID
     Route: 055
     Dates: start: 2016
  6. CHEMOTHERAPY [Concomitant]
     Active Substance: UNSPECIFIED INGREDIENT

REACTIONS (10)
  - Peripheral swelling [Unknown]
  - Condition aggravated [Unknown]
  - Adverse drug reaction [Unknown]
  - Cough [Unknown]
  - Presyncope [Unknown]
  - Product use in unapproved indication [Unknown]
  - Choking [Unknown]
  - Lung neoplasm malignant [Unknown]
  - Atelectasis [Unknown]
  - Malaise [Unknown]
